FAERS Safety Report 19694920 (Version 6)
Quarter: 2022Q1

REPORT INFORMATION
  Report Type: Report from Study
  Country: CA (occurrence: CA)
  Receive Date: 20210813
  Receipt Date: 20220131
  Transmission Date: 20220424
  Serious: Yes (Other)
  Sender: FDA-Public Use
  Company Number: CA-JNJFOC-20210818003

PATIENT
  Age: 38 Year
  Sex: Female
  Weight: 60 kg

DRUGS (2)
  1. REMICADE [Suspect]
     Active Substance: INFLIXIMAB
     Indication: Rheumatoid arthritis
     Dosage: ADDITIONAL EXPIRY: APR-2024
     Route: 042
     Dates: start: 20210717
  2. REMICADE [Suspect]
     Active Substance: INFLIXIMAB
     Indication: Crohn^s disease

REACTIONS (9)
  - Clostridium difficile infection [Unknown]
  - Faecaloma [Recovering/Resolving]
  - Crohn^s disease [Unknown]
  - Skin fissures [Unknown]
  - Anal incontinence [Unknown]
  - Vulvovaginal mycotic infection [Unknown]
  - Rectal prolapse [Unknown]
  - Functional gastrointestinal disorder [Unknown]
  - Faeces pale [Unknown]

NARRATIVE: CASE EVENT DATE: 20210101
